FAERS Safety Report 13369663 (Version 1)
Quarter: 2017Q1

REPORT INFORMATION
  Report Type: Spontaneous
  Country: US (occurrence: US)
  Receive Date: 20170324
  Receipt Date: 20170324
  Transmission Date: 20170429
  Serious: Yes (Other)
  Sender: FDA-Public Use
  Company Number: US-ROCHE-1235802

PATIENT
  Age: 63 Year
  Sex: Male
  Weight: 94.43 kg

DRUGS (8)
  1. AMLODIPINE [Concomitant]
     Active Substance: AMLODIPINE BESYLATE
  2. DALIRESP [Concomitant]
     Active Substance: ROFLUMILAST
  3. VALSARTAN. [Concomitant]
     Active Substance: VALSARTAN
  4. FISH OIL [Concomitant]
     Active Substance: FISH OIL
  5. BABY ASPIRIN [Concomitant]
     Active Substance: ASPIRIN
  6. XOLAIR [Suspect]
     Active Substance: OMALIZUMAB
     Indication: PRODUCT USED FOR UNKNOWN INDICATION
     Route: 058
     Dates: start: 20130228, end: 20130529
  7. TRIAMTERENE. [Concomitant]
     Active Substance: TRIAMTERENE
     Dosage: EACH NOSTRIL
     Route: 058
     Dates: start: 2011
  8. ADVAIR HFA [Suspect]
     Active Substance: FLUTICASONE PROPIONATE\SALMETEROL XINAFOATE
     Indication: ASTHMA
     Dosage: 500/50
     Route: 048
     Dates: start: 2011

REACTIONS (2)
  - Dysphonia [Not Recovered/Not Resolved]
  - Throat tightness [Unknown]

NARRATIVE: CASE EVENT DATE: 20130529
